FAERS Safety Report 12454429 (Version 1)
Quarter: 2016Q2

REPORT INFORMATION
  Report Type: Spontaneous
  Country: US (occurrence: None)
  Receive Date: 20160609
  Receipt Date: 20160609
  Transmission Date: 20160815
  Serious: Yes (Disabling)
  Sender: FDA-Public Use
  Company Number: None

PATIENT
  Age: 77 Year
  Sex: Male
  Weight: 109 kg

DRUGS (3)
  1. ASPIRIN. [Concomitant]
     Active Substance: ASPIRIN
  2. ENOXAPARIN, 100 MG [Suspect]
     Active Substance: ENOXAPARIN SODIUM
     Indication: ATRIAL FIBRILLATION
     Route: 058
     Dates: start: 20160601, end: 20160604
  3. APIXABAN, 2.5 MG [Suspect]
     Active Substance: APIXABAN
     Indication: ATRIAL FIBRILLATION
     Route: 048
     Dates: start: 20160604, end: 20160607

REACTIONS (7)
  - Platelet count decreased [None]
  - Diplegia [None]
  - Haematoma [None]
  - Catheter site haemorrhage [None]
  - Respiratory failure [None]
  - Atrial flutter [None]
  - Monoplegia [None]

NARRATIVE: CASE EVENT DATE: 20160607
